FAERS Safety Report 7035682-1 (Version None)
Quarter: 2010Q4

REPORT INFORMATION
  Report Type: 
  Country: None (occurrence: None)
  Receive Date: 20101008
  Receipt Date: 20100929
  Transmission Date: 20110411
  Serious: Yes (Disabling)
  Sender: FDA-Public Use
  Company Number: IE-PFIZER INC-2010083389

PATIENT
  Age: 49 Year
  Sex: Female
  Weight: 75 kg

DRUGS (4)
  1. LYRICA [Suspect]
     Indication: RADICULAR PAIN
     Dosage: 200 MG, 2X/DAY
     Route: 048
     Dates: start: 20090701
  2. DICLOFENAC [Concomitant]
     Indication: PAIN
     Dosage: 75 MG, 2X/DAY
     Route: 048
     Dates: start: 20091101
  3. PARACETAMOL [Concomitant]
     Indication: PAIN
     Dosage: 1 G; EVERY SIX HOURS
     Route: 048
     Dates: start: 20091101
  4. DIAZEPAM [Concomitant]
     Indication: MUSCLE SPASMS
     Dosage: 10 MG, 1X/DAY AT NIGHT
     Route: 048
     Dates: start: 20100201

REACTIONS (3)
  - FALSE POSITIVE INVESTIGATION RESULT [None]
  - MUSCLE SPASMS [None]
  - PAIN [None]
